FAERS Safety Report 22181857 (Version 1)
Quarter: 2023Q2

REPORT INFORMATION
  Report Type: Spontaneous
  Country: US (occurrence: None)
  Receive Date: 20230406
  Receipt Date: 20230406
  Transmission Date: 20230721
  Serious: Yes (Life-Threatening, Hospitalization)
  Sender: FDA-Public Use
  Company Number: None

PATIENT
  Age: 84 Year
  Sex: Female
  Weight: 58.3 kg

DRUGS (8)
  1. DONEPEZIL [Suspect]
     Active Substance: DONEPEZIL
     Indication: Dementia Alzheimer^s type
     Dosage: FREQUENCY : DAILY;?
     Route: 048
     Dates: start: 20230323, end: 20230330
  2. Methylprednisolone 4 mg dose pack [Concomitant]
     Dates: start: 20230222, end: 20230228
  3. KETOCONAZOLE [Concomitant]
     Active Substance: KETOCONAZOLE
     Dates: start: 20221214
  4. Fluticasone HFA 44 mcg inhaler [Concomitant]
     Dates: start: 20150526
  5. Memantine 5 mg [Concomitant]
     Dates: start: 20220217
  6. ACETAMINOPHEN [Concomitant]
     Active Substance: ACETAMINOPHEN
     Dates: start: 20180712
  7. Multivitamin 1 tab [Concomitant]
     Dates: start: 20140823
  8. Levalbuterol 45 mcg [Concomitant]
     Dates: start: 20181031

REACTIONS (1)
  - Generalised tonic-clonic seizure [None]

NARRATIVE: CASE EVENT DATE: 20230330
